FAERS Safety Report 4981419-7 (Version None)
Quarter: 2006Q2

REPORT INFORMATION
  Report Type: 
  Country: None (occurrence: None)
  Receive Date: 20060424
  Receipt Date: 20051013
  Transmission Date: 20061013
  Serious: Yes (Death)
  Sender: FDA-Public Use
  Company Number: PR-MERCK-0510USA07215

PATIENT
  Age: 61 Year
  Sex: Male
  Weight: 73 kg

DRUGS (7)
  1. VIOXX [Suspect]
     Indication: ARTHRALGIA
     Route: 048
     Dates: start: 20030101, end: 20040630
  2. ASPIRIN [Concomitant]
     Route: 065
  3. INSULIN [Concomitant]
     Route: 065
  4. TOPROL-XL [Concomitant]
     Route: 065
  5. COZAAR [Concomitant]
     Route: 065
  6. [THERAPY UNSPECIFIED] [Concomitant]
     Route: 065
  7. CELEBREX [Concomitant]
     Route: 065

REACTIONS (7)
  - ACUTE MYOCARDIAL INFARCTION [None]
  - ARTERIOSCLEROSIS [None]
  - CHEST PAIN [None]
  - HYPERTENSION [None]
  - INTERMITTENT CLAUDICATION [None]
  - OVERDOSE [None]
  - PARKINSON'S DISEASE [None]
